FAERS Safety Report 16099249 (Version 7)
Quarter: 2019Q2

REPORT INFORMATION
  Report Type: Report from Study
  Country: KW (occurrence: KW)
  Receive Date: 20190321
  Receipt Date: 20190625
  Transmission Date: 20190711
  Serious: Yes (Other)
  Sender: FDA-Public Use
  Company Number: PHHY2019KW026462

PATIENT
  Age: 56 Year
  Sex: Female

DRUGS (4)
  1. KISQALI [Suspect]
     Active Substance: RIBOCICLIB
     Dosage: 600 MG, QD
     Route: 048
     Dates: start: 20190210, end: 20190224
  2. KISQALI [Suspect]
     Active Substance: RIBOCICLIB
     Indication: BREAST CANCER METASTATIC
     Dosage: 600 MG, QD
     Route: 048
     Dates: start: 20190120, end: 20190203
  3. KISQALI [Suspect]
     Active Substance: RIBOCICLIB
     Dosage: 400 MG, UNK
     Route: 048
     Dates: start: 20190310, end: 20190505
  4. KISQALI [Suspect]
     Active Substance: RIBOCICLIB
     Dosage: UNK
     Route: 048
     Dates: start: 20190514, end: 20190617

REACTIONS (16)
  - Neutropenia [Not Recovered/Not Resolved]
  - Dysuria [Not Recovered/Not Resolved]
  - Decreased appetite [Unknown]
  - Dry skin [Unknown]
  - Nausea [Unknown]
  - Pruritus generalised [Recovering/Resolving]
  - Decreased immune responsiveness [Recovered/Resolved]
  - Acne [Unknown]
  - Urinary tract pain [Not Recovered/Not Resolved]
  - Back pain [Unknown]
  - Gait disturbance [Recovering/Resolving]
  - Oropharyngeal pain [Recovering/Resolving]
  - Electrocardiogram QT prolonged [Unknown]
  - Electrocardiogram QT prolonged [Recovered/Resolved]
  - Musculoskeletal chest pain [Unknown]
  - Insomnia [Unknown]

NARRATIVE: CASE EVENT DATE: 201902
